FAERS Safety Report 6526038-6 (Version None)
Quarter: 2010Q1

REPORT INFORMATION
  Report Type: 
  Country: None (occurrence: None)
  Receive Date: 20100104
  Receipt Date: 20091228
  Transmission Date: 20100710
  Serious: Yes (Other)
  Sender: FDA-Public Use
  Company Number: RO-PFIZER INC-2009312996

PATIENT
  Age: 56 Year
  Sex: Female
  Weight: 40 kg

DRUGS (8)
  1. CHAMPIX [Suspect]
     Dosage: 1 DF, 2X/DAY
     Route: 048
     Dates: start: 20091020, end: 20091026
  2. THEO-SR [Concomitant]
     Dosage: UNK
  3. RANOLIP [Concomitant]
     Dosage: UNK
  4. TRIMETAZIDINE [Concomitant]
     Dosage: UNK
  5. GINKO BILOBA [Concomitant]
     Dosage: UNK
  6. METOSUCCINATE [Concomitant]
     Dosage: UNK
  7. OCUVITE LUTEIN FORTE [Concomitant]
     Dosage: UNK
  8. MILGAMMA [Concomitant]
     Dosage: UNK

REACTIONS (9)
  - ABDOMINAL PAIN UPPER [None]
  - ARTHRALGIA [None]
  - BLEPHAROSPASM [None]
  - DIZZINESS [None]
  - EYELID PTOSIS [None]
  - HEADACHE [None]
  - VISION BLURRED [None]
  - VISUAL IMPAIRMENT [None]
  - VOMITING [None]
